FAERS Safety Report 9249098 (Version 1)
Quarter: 2013Q1

REPORT INFORMATION
  Report Type: Spontaneous
  Country: US (occurrence: None)
  Receive Date: 20130305
  Receipt Date: 20130305
  Transmission Date: 20140127
  Serious: Yes (Disabling, Other)
  Sender: FDA-Public Use
  Company Number: 163-21880-12100863

PATIENT
  Age: 59 Year
  Sex: Female

DRUGS (19)
  1. REVLIMID [Suspect]
     Indication: PLASMA CELL MYELOMA
     Route: 048
     Dates: start: 20091016, end: 2010
  2. PAMIDRONATE (PAMIDRONATE DISODIUM) [Concomitant]
  3. RESTASIS (CICLOSPORIN) [Concomitant]
  4. ZOMETA (ZOLEDRONIC ACID) [Concomitant]
  5. HYDROMORPHONE (HYDROMORPHONE) [Concomitant]
  6. FOLIC ACID (FOLIC ACID) [Concomitant]
  7. OMEPRAZOLE (OMEPRAZOLE) [Concomitant]
  8. VITAMIN B12 (CYANOCOBALAMIN) [Concomitant]
  9. LEVOXYL (LEVOTHYROXINE SODIUM) [Concomitant]
  10. VITAMIN E (TOCOPHEROL) [Concomitant]
  11. FLOVENT (FLUTICASONE PROPIONATE) [Concomitant]
  12. ALBUTEROL (SALBUTAMOL) [Concomitant]
  13. LORATIDINE [Concomitant]
  14. CITALOPRAM (CITALOPRAM) [Concomitant]
  15. VITAMIN B6 (PYRIDOXINE HYDROCHLORIDE) [Concomitant]
  16. DEXAMETHASONE (DEXAMETHASONE) [Concomitant]
  17. RED YEAST (MONASCUS PURPUREUS) [Concomitant]
  18. ACTONEL (RISEDRONATE SODIUM) [Concomitant]
  19. ALLOPURINOL [Concomitant]

REACTIONS (3)
  - Neutropenia [None]
  - Fatigue [None]
  - Bronchitis [None]
